FAERS Safety Report 7167185-8 (Version None)
Quarter: 2010Q4

REPORT INFORMATION
  Report Type: 
  Country: None (occurrence: None)
  Receive Date: 20101216
  Receipt Date: 20101206
  Transmission Date: 20110411
  Serious: Yes (Other)
  Sender: FDA-Public Use
  Company Number: PHHY2010AU83280

PATIENT
  Sex: Male

DRUGS (1)
  1. GLEEVEC [Suspect]
     Dosage: 800 MG, UNK

REACTIONS (3)
  - CHEST PAIN [None]
  - INFLUENZA LIKE ILLNESS [None]
  - MYOCARDITIS [None]
